FAERS Safety Report 4737848-X (Version None)
Quarter: 2005Q3

REPORT INFORMATION
  Report Type: 
  Country: None (occurrence: None)
  Receive Date: 20050803
  Receipt Date: 20050728
  Transmission Date: 20060218
  Serious: Yes (Other)
  Sender: FDA-Public Use
  Company Number: PCA0202748

PATIENT
  Age: 77 Year
  Sex: Male
  Weight: 83.9154 kg

DRUGS (3)
  1. PSEUDOEPHEDRINE EXTENDED RELIEF, 120MG, PERRIGO [Suspect]
     Indication: NASOPHARYNGITIS
     Dosage: ORAL
     Route: 048
  2. WARAFIN SODIUM [Concomitant]
  3. ATENOL [Concomitant]

REACTIONS (3)
  - HAEMATOCHEZIA [None]
  - PENILE HAEMORRHAGE [None]
  - PROTHROMBIN TIME PROLONGED [None]
